FAERS Safety Report 7611701-6 (Version None)
Quarter: 2011Q3

REPORT INFORMATION
  Report Type: 
  Country: None (occurrence: None)
  Receive Date: 20110715
  Receipt Date: 20110705
  Transmission Date: 20111222
  Serious: Yes (Hospitalization, Other)
  Sender: FDA-Public Use
  Company Number: DE-MERCK-1107DEU00048

PATIENT
  Age: 62 Year
  Sex: Male

DRUGS (2)
  1. METFORMIN [Concomitant]
     Indication: BLOOD GLUCOSE INCREASED
     Route: 048
  2. JANUVIA [Suspect]
     Indication: BLOOD GLUCOSE INCREASED
     Route: 048

REACTIONS (4)
  - CRITICAL ILLNESS POLYNEUROPATHY [None]
  - PNEUMONIA [None]
  - PANCREATITIS NECROTISING [None]
  - BLOOD GLUCOSE INCREASED [None]
